FAERS Safety Report 7388575-4 (Version None)
Quarter: 2011Q2

REPORT INFORMATION
  Report Type: 
  Country: None (occurrence: None)
  Receive Date: 20110401
  Receipt Date: 20110319
  Transmission Date: 20111010
  Serious: Yes (Other)
  Sender: FDA-Public Use
  Company Number: DE-JNJFOC-20110312535

PATIENT
  Age: 83 Year
  Sex: Female

DRUGS (7)
  1. MARCUMAR [Concomitant]
     Dosage: 2 X 0.25 TABLETS PER DAY
     Route: 065
  2. AMIODARONE HCL [Concomitant]
     Dosage: 200 (1 TABLET PER DAY IN THE MORNING)
     Route: 065
  3. ACTONEL [Concomitant]
     Dosage: 30 (1 TABLET PER DAY)
     Route: 065
  4. OXYCODONE [Concomitant]
     Route: 065
  5. HYDROCHLOROTHIAZIDE/RAMIPRIL [Concomitant]
     Dosage: 5/25 (0.5 TABLET PER DAY)
     Route: 065
  6. PALEXIA RETARD [Suspect]
     Indication: PRODUCT USED FOR UNKNOWN INDICATION
     Dosage: 50 MG 2 IN A DAY
     Route: 048
  7. MARCUMAR [Concomitant]
     Indication: ATRIAL FIBRILLATION
     Dosage: 2X 0.5 TABLETS PER DAY FOR YEARS
     Route: 065

REACTIONS (1)
  - INTERNATIONAL NORMALISED RATIO ABNORMAL [None]
